FAERS Safety Report 7462549-7 (Version None)
Quarter: 2011Q2

REPORT INFORMATION
  Report Type: 
  Country: None (occurrence: None)
  Receive Date: 20110506
  Receipt Date: 20110426
  Transmission Date: 20111010
  Serious: Yes (Hospitalization, Other)
  Sender: FDA-Public Use
  Company Number: FR-SANOFI-AVENTIS-200310959GDDC

PATIENT
  Age: 73 Year
  Sex: Male

DRUGS (6)
  1. INDAPAMIDE [Suspect]
     Indication: HYPERTENSION
     Dosage: DOSE UNIT: 1.5 MG
     Route: 048
     Dates: start: 20021115, end: 20021127
  2. DIAZEPAM [Concomitant]
     Dates: start: 20021125, end: 20021127
  3. PRINCI-B-FORT [Concomitant]
     Dates: start: 20020101
  4. PLAVIX [Concomitant]
     Dates: start: 20020101
  5. TRIMEBUTINE [Concomitant]
     Dates: start: 20021125, end: 20021127
  6. COZAAR [Concomitant]
     Dates: start: 20020601, end: 20021127

REACTIONS (8)
  - INAPPROPRIATE ANTIDIURETIC HORMONE SECRETION [None]
  - HYPONATRAEMIA [None]
  - CREATININE RENAL CLEARANCE DECREASED [None]
  - HYPOKALAEMIA [None]
  - INSOMNIA [None]
  - BLOOD OSMOLARITY DECREASED [None]
  - SOMNOLENCE [None]
  - HICCUPS [None]
